FAERS Safety Report 21673679 (Version 1)
Quarter: 2022Q4

REPORT INFORMATION
  Report Type: Spontaneous
  Country: DE (occurrence: DE)
  Receive Date: 20221202
  Receipt Date: 20221202
  Transmission Date: 20230112
  Serious: Yes (Other)
  Sender: FDA-Public Use
  Company Number: DE-GE HEALTHCARE-2022CSU008376

PATIENT
  Age: 66 Year
  Sex: Female
  Weight: 70 kg

DRUGS (4)
  1. CLARISCAN [Suspect]
     Active Substance: GADOTERATE MEGLUMINE
     Indication: Magnetic resonance imaging head
     Dosage: 15 ML, SINGLE
     Route: 042
     Dates: start: 20221110, end: 20221110
  2. CLARISCAN [Suspect]
     Active Substance: GADOTERATE MEGLUMINE
     Indication: Breast cancer
  3. CLARISCAN [Suspect]
     Active Substance: GADOTERATE MEGLUMINE
     Indication: Headache
  4. CLARISCAN [Suspect]
     Active Substance: GADOTERATE MEGLUMINE
     Indication: Dizziness

REACTIONS (4)
  - Dyspnoea [Recovered/Resolved]
  - Dizziness [Recovered/Resolved]
  - Discomfort [Recovered/Resolved]
  - Erythema [Recovered/Resolved]

NARRATIVE: CASE EVENT DATE: 20221110
